FAERS Safety Report 4369759-6 (Version None)
Quarter: 2004Q2

REPORT INFORMATION
  Report Type: 
  Country: None (occurrence: None)
  Receive Date: 20040528
  Receipt Date: 20040520
  Transmission Date: 20050107
  Serious: Yes (Other)
  Sender: FDA-Public Use
  Company Number: 2004034654

PATIENT
  Sex: Female

DRUGS (1)
  1. BENADRYL [Suspect]
     Indication: OVERDOSE
     Dosage: 10 TABS ON 20/MAY/04; 3 TABS 21/MAY/04, ORAL
     Route: 048
     Dates: start: 20040519, end: 20040520

REACTIONS (4)
  - ASTHENIA [None]
  - DIZZINESS [None]
  - DRUG HYPERSENSITIVITY [None]
  - VISION BLURRED [None]
